FAERS Safety Report 7669036-1 (Version None)
Quarter: 2011Q3

REPORT INFORMATION
  Report Type: 
  Country: None (occurrence: None)
  Receive Date: 20110808
  Receipt Date: 20110802
  Transmission Date: 20111222
  Serious: Yes (Hospitalization)
  Sender: FDA-Public Use
  Company Number: US-B.I. PHARMACEUTICALS,INC./RIDGEFIELD-2011-BP-18959BP

PATIENT
  Sex: Male

DRUGS (9)
  1. SPIRIVA [Suspect]
     Indication: PROPHYLAXIS
     Route: 055
     Dates: start: 20100101, end: 20110601
  2. LISINOPRIL [Concomitant]
  3. RANITIDINE HYDROCHLORIDE [Concomitant]
  4. FLOVENT HFA [Suspect]
     Indication: PROPHYLAXIS
     Route: 055
     Dates: start: 20010101, end: 20110620
  5. SEREVENT [Suspect]
     Indication: PROPHYLAXIS
     Route: 055
     Dates: start: 20010101, end: 20110620
  6. AMLODIPINE [Concomitant]
  7. OLMESARTAN MEDOXIMIL [Concomitant]
  8. LANSOPRAZOLE [Concomitant]
  9. EZETIMIBE/SIMVASTATIN [Concomitant]

REACTIONS (10)
  - SWOLLEN TONGUE [None]
  - VISION BLURRED [None]
  - ERYTHEMA [None]
  - LIP SWELLING [None]
  - DRY MOUTH [None]
  - PALPITATIONS [None]
  - OCULAR HYPERAEMIA [None]
  - VISUAL IMPAIRMENT [None]
  - ELECTROCARDIOGRAM ABNORMAL [None]
  - HEADACHE [None]
